FAERS Safety Report 8474717-6 (Version None)
Quarter: 2012Q2

REPORT INFORMATION
  Report Type: 
  Country: None (occurrence: None)
  Receive Date: 20120628
  Receipt Date: 20120619
  Transmission Date: 20120825
  Serious: Yes (Other)
  Sender: FDA-Public Use
  Company Number: US-JNJFOC-20120610483

PATIENT
  Age: 61 Year
  Sex: Male
  Weight: 95.26 kg

DRUGS (2)
  1. BENGAY VANISHING SCENT [Suspect]
     Indication: MYALGIA
     Dosage: NICKEL SIZE AMOUNT
     Route: 061
     Dates: start: 20120604, end: 20120604
  2. UNKNOWN MEDICATION [Concomitant]
     Route: 065

REACTIONS (2)
  - BURNS THIRD DEGREE [None]
  - OPEN WOUND [None]
